FAERS Safety Report 8875341 (Version 1)
Quarter: 2012Q4

REPORT INFORMATION
  Report Type: 
  Country: TH (occurrence: TH)
  Receive Date: 20121029
  Receipt Date: 20121029
  Transmission Date: 20130627
  Serious: Yes (Other)
  Sender: FDA-Public Use
  Company Number: US-BAYER-2012-074743

PATIENT
  Age: 52 Year
  Sex: Male
  Weight: 41 kg

DRUGS (6)
  1. MOXIFLOXACIN ORAL [Suspect]
     Dosage: UNK
     Dates: start: 20110627
  2. MOXIFLOXACIN ORAL [Suspect]
  3. RIFAMPICIN [Suspect]
     Indication: PULMONARY TUBERCULOSIS
     Dosage: UNK
     Dates: start: 20110727
  4. PYRAZINAMIDE [Suspect]
     Indication: PULMONARY TUBERCULOSIS
     Dosage: UNK
     Dates: start: 20110627
  5. ISONIAZID [Suspect]
     Indication: PULMONARY TUBERCULOSIS
     Dosage: UNK
     Dates: start: 20110627
  6. PLACEBO [Suspect]
     Indication: PULMONARY TUBERCULOSIS
     Dosage: Placebo to ethambutol
     Dates: start: 20110627

REACTIONS (1)
  - Colour blindness [Recovered/Resolved]
